FAERS Safety Report 18602388 (Version 5)
Quarter: 2021Q2

REPORT INFORMATION
  Report Type: Spontaneous
  Country: US (occurrence: US)
  Receive Date: 20201211
  Receipt Date: 20210401
  Transmission Date: 20210717
  Serious: No
  Sender: FDA-Public Use
  Company Number: US-BRISTOL-MYERS SQUIBB COMPANY-BMS-2020-105693

PATIENT
  Age: 47 Year
  Sex: Male

DRUGS (5)
  1. SPRYCEL [Suspect]
     Active Substance: DASATINIB
     Indication: CHRONIC MYELOID LEUKAEMIA
     Dosage: 70 MILLIGRAM, QD
     Route: 048
     Dates: start: 20180306
  2. SPRYCEL [Suspect]
     Active Substance: DASATINIB
     Dosage: 70 MILLIGRAM, QD
     Route: 048
     Dates: start: 20191101
  3. SPRYCEL [Suspect]
     Active Substance: DASATINIB
     Dosage: 70 MILLIGRAM
     Route: 048
     Dates: start: 20191025
  4. SPRYCEL [Suspect]
     Active Substance: DASATINIB
     Dosage: 70 MILLIGRAM, QD
     Route: 048
     Dates: start: 20180503
  5. SPRYCEL [Suspect]
     Active Substance: DASATINIB
     Dosage: 70 MILLIGRAM, QD
     Route: 048
     Dates: start: 20190111

REACTIONS (8)
  - Mental status changes [Unknown]
  - Feeling abnormal [Recovering/Resolving]
  - Fatigue [Recovering/Resolving]
  - Pain [Recovering/Resolving]
  - Skin discolouration [Recovering/Resolving]
  - Dry skin [Recovering/Resolving]
  - Vertigo [Recovering/Resolving]
  - Sinus disorder [Recovering/Resolving]

NARRATIVE: CASE EVENT DATE: 20201123
